FAERS Safety Report 9884984 (Version 3)
Quarter: 2014Q1

REPORT INFORMATION
  Report Type: Spontaneous
  Country: DE (occurrence: DE)
  Receive Date: 20140210
  Receipt Date: 20140307
  Transmission Date: 20141002
  Serious: Yes (Life-Threatening, Hospitalization)
  Sender: FDA-Public Use
  Company Number: DE-JNJFOC-20140205008

PATIENT
  Age: 73 Year
  Sex: Female
  Weight: 51 kg

DRUGS (7)
  1. XARELTO [Suspect]
     Indication: CEREBROVASCULAR ACCIDENT PROPHYLAXIS
     Route: 048
     Dates: start: 201307, end: 201307
  2. XARELTO [Suspect]
     Indication: ATRIAL FIBRILLATION
     Route: 048
     Dates: start: 201307, end: 201307
  3. ROCALTROL [Interacting]
     Indication: THYROIDECTOMY
     Route: 065
  4. ROCALTROL [Interacting]
     Indication: HYPOTHYROIDISM
     Route: 065
  5. CALCIUM [Interacting]
     Indication: HYPOTHYROIDISM
     Route: 065
  6. CALCIUM [Interacting]
     Indication: THYROIDECTOMY
     Route: 065
  7. HCT [Concomitant]
     Route: 065

REACTIONS (4)
  - Hypercalcaemia [Recovered/Resolved]
  - Fatigue [Recovered/Resolved]
  - Gait disturbance [Recovered/Resolved]
  - Drug interaction [Unknown]
